FAERS Safety Report 8955939 (Version 2)
Quarter: 2013Q1

REPORT INFORMATION
  Report Type: Spontaneous
  Country: IT (occurrence: IT)
  Receive Date: 20121210
  Receipt Date: 20130108
  Transmission Date: 20140127
  Serious: Yes (Life-Threatening, Hospitalization)
  Sender: FDA-Public Use
  Company Number: PHHY2012IT110479

PATIENT
  Age: 83 Year
  Sex: Female

DRUGS (2)
  1. COMBISARTAN [Suspect]
     Indication: HYPERTENSION
     Dosage: 1 DF (VALS 160 MG, HYDR 12.5 MG), UNK
     Route: 048
     Dates: start: 20110101, end: 20121121
  2. CITALOPRAM [Suspect]
     Indication: DEPRESSION
     Dosage: 20 MG, PER DAY
     Route: 048
     Dates: start: 20120101, end: 20121121

REACTIONS (6)
  - Hyponatraemia [Recovered/Resolved]
  - Vertigo [Recovered/Resolved]
  - Malaise [Recovered/Resolved]
  - Asthenia [Recovered/Resolved]
  - Blood glucose increased [Unknown]
  - Blood bilirubin increased [Unknown]
